FAERS Safety Report 5411931-8 (Version None)
Quarter: 2007Q3

REPORT INFORMATION
  Report Type: 
  Country: None (occurrence: None)
  Receive Date: 20070813
  Receipt Date: 20070806
  Transmission Date: 20080115
  Serious: Yes (Other)
  Sender: FDA-Public Use
  Company Number: FR-ELI_LILLY_AND_COMPANY-FR200707001837

PATIENT
  Age: 69 Year
  Sex: Female

DRUGS (4)
  1. FORTEO [Suspect]
     Indication: OSTEOPOROSIS
     Dosage: 20 UG, DAILY (1/D)
     Route: 058
     Dates: start: 20060707, end: 20061001
  2. FORTEO [Suspect]
     Dosage: 20 UG, DAILY (1/D)
     Route: 058
  3. OROCAL D(3) [Concomitant]
     Dosage: 2 D/F, DAILY (1/D)
     Route: 048
  4. UVEDOSE [Concomitant]
     Dosage: 1 D/F, UNK
     Dates: start: 20070501, end: 20070501

REACTIONS (2)
  - DYSPNOEA [None]
  - OESOPHAGEAL CARCINOMA [None]
